FAERS Safety Report 10194615 (Version 1)
Quarter: 2014Q2

REPORT INFORMATION
  Report Type: Spontaneous
  Country: US (occurrence: US)
  Receive Date: 20140526
  Receipt Date: 20140526
  Transmission Date: 20141212
  Serious: No
  Sender: FDA-Public Use
  Company Number: US-BIOGENIDEC-2014BI044795

PATIENT
  Age: 32 Year
  Sex: Male

DRUGS (5)
  1. TECFIDERA [Suspect]
     Indication: MULTIPLE SCLEROSIS
     Route: 048
     Dates: start: 20130808
  2. CLOZARIL [Concomitant]
  3. TRAMADOL HCL [Concomitant]
  4. WARFARIN SODIUM [Concomitant]
  5. XANAX [Concomitant]

REACTIONS (2)
  - Muscular weakness [Unknown]
  - Gait disturbance [Unknown]
